FAERS Safety Report 7519406-7 (Version None)
Quarter: 2011Q2

REPORT INFORMATION
  Report Type: 
  Country: None (occurrence: None)
  Receive Date: 20110602
  Receipt Date: 20110520
  Transmission Date: 20111010
  Serious: Yes (Hospitalization)
  Sender: FDA-Public Use
  Company Number: IT-BAYER-201040247GPV

PATIENT
  Age: 66 Year
  Sex: Male

DRUGS (6)
  1. NEXAVAR [Suspect]
     Indication: HEPATIC NEOPLASM MALIGNANT
     Route: 048
     Dates: start: 20100810, end: 20100905
  2. LAEVOLAC [Concomitant]
     Dosage: 20 ML (DAILY DOSE), , ORAL
     Route: 048
  3. KANRENOL [Concomitant]
     Dosage: 50 MG (DAILY DOSE), , ORAL
     Route: 048
  4. HUMALOG [Concomitant]
     Dosage: 26 IU (DAILY DOSE), , SUBCUTANEOUS
     Route: 058
  5. HUMALOG [Concomitant]
     Dosage: 10 IU (DAILY DOSE), , SUBCUTANEOUS
     Route: 058
  6. INDERAL [Concomitant]
     Dosage: 20 MG (DAILY DOSE), , ORAL
     Route: 048

REACTIONS (2)
  - JAUNDICE [None]
  - ASCITES [None]
